FAERS Safety Report 14769942 (Version 7)
Quarter: 2019Q1

REPORT INFORMATION
  Report Type: Spontaneous
  Country: CA (occurrence: CA)
  Receive Date: 20180417
  Receipt Date: 20190311
  Transmission Date: 20190417
  Serious: Yes (Other)
  Sender: FDA-Public Use
  Company Number: CA-CELLTRION INC.-2018CA018733

PATIENT

DRUGS (8)
  1. INFLECTRA [Suspect]
     Active Substance: INFLIXIMAB-DYYB
     Indication: CROHN^S DISEASE
     Dosage: 430 MG AT 0, 2, 6, THEN EVERY 8 WEEKS
     Route: 042
     Dates: start: 20180222
  2. INFLECTRA [Suspect]
     Active Substance: INFLIXIMAB-DYYB
     Dosage: 430 MG AT 0, 2, 6, THEN EVERY 8 WEEKS
     Route: 042
     Dates: start: 20180309
  3. INFLECTRA [Suspect]
     Active Substance: INFLIXIMAB-DYYB
     Dosage: 430 MG AT 0, 2, 6, THEN EVERY 8 WEEKS
     Route: 042
     Dates: start: 20180726
  4. INFLECTRA [Suspect]
     Active Substance: INFLIXIMAB-DYYB
     Dosage: 430 MG AT 0, 2, 6, THEN EVERY 8 WEEKS
     Route: 042
     Dates: start: 20181222
  5. INFLECTRA [Suspect]
     Active Substance: INFLIXIMAB-DYYB
     Dosage: 430 MG AT 0, 2, 6, THEN EVERY 8 WEEKS
     Route: 042
     Dates: start: 20180920
  6. SYMBICORT [Concomitant]
     Active Substance: BUDESONIDE\FORMOTEROL FUMARATE DIHYDRATE
     Dosage: PUFFER AS NEEDED
  7. INFLECTRA [Suspect]
     Active Substance: INFLIXIMAB-DYYB
     Dosage: 430 MG AT 0, 2, 6, THEN EVERY 8 WEEKS
     Route: 042
     Dates: start: 20180406
  8. INFLECTRA [Suspect]
     Active Substance: INFLIXIMAB-DYYB
     Dosage: 500 MG, (EVERY 8 WEEKS)
     Route: 042
     Dates: start: 20190221

REACTIONS (5)
  - Drug effect incomplete [Unknown]
  - Weight increased [Unknown]
  - Weight decreased [Unknown]
  - Haematochezia [Unknown]
  - Product use issue [Unknown]

NARRATIVE: CASE EVENT DATE: 20180308
